FAERS Safety Report 5784753-6 (Version None)
Quarter: 2008Q2

REPORT INFORMATION
  Report Type: 
  Country: None (occurrence: None)
  Receive Date: 20080605
  Receipt Date: 20080501
  Transmission Date: 20081010
  Serious: No
  Sender: FDA-Public Use
  Company Number: A0722534A

PATIENT
  Age: 35 Year
  Sex: Female

DRUGS (1)
  1. ALLI [Suspect]

REACTIONS (5)
  - ALOPECIA [None]
  - ARTHRALGIA [None]
  - HOT FLUSH [None]
  - MOOD SWINGS [None]
  - STOMACH DISCOMFORT [None]
